FAERS Safety Report 23303996 (Version 1)
Quarter: 2023Q4

REPORT INFORMATION
  Report Type: Report from Study
  Country: BR (occurrence: BR)
  Receive Date: 20231215
  Receipt Date: 20231215
  Transmission Date: 20240110
  Serious: Yes (Other)
  Sender: FDA-Public Use
  Company Number: BR-BAYER-2023A174355

PATIENT
  Age: 60 Year
  Sex: Male

DRUGS (2)
  1. NEXAVAR [Suspect]
     Active Substance: SORAFENIB
     Indication: Hepatocellular carcinoma
     Dosage: 800 MG DAILY
     Dates: start: 20220710
  2. NEXAVAR [Suspect]
     Active Substance: SORAFENIB
     Indication: Hepatocellular carcinoma
     Dosage: 600 MG DAILY

REACTIONS (13)
  - Hepatitis C [None]
  - Gait inability [Recovering/Resolving]
  - Blister [Recovering/Resolving]
  - Hyperkeratosis [Not Recovered/Not Resolved]
  - Blood pressure increased [Unknown]
  - Skin discolouration [Not Recovered/Not Resolved]
  - Heart rate increased [Unknown]
  - Nervousness [None]
  - Pain [None]
  - Dry skin [Recovering/Resolving]
  - Weight decreased [Recovered/Resolved]
  - Depression [None]
  - Food refusal [None]

NARRATIVE: CASE EVENT DATE: 20220101
